FAERS Safety Report 6545987-6 (Version None)
Quarter: 2010Q1

REPORT INFORMATION
  Report Type: 
  Country: None (occurrence: None)
  Receive Date: 20100121
  Receipt Date: 20100121
  Transmission Date: 20100710
  Serious: No
  Sender: FDA-Public Use
  Company Number: None

PATIENT
  Sex: Female

DRUGS (1)
  1. BUPROPION HCL [Suspect]
     Indication: DEPRESSION
     Dosage: 300MG 1 PO
     Route: 048
     Dates: start: 20061226

REACTIONS (3)
  - FEELING JITTERY [None]
  - HEADACHE [None]
  - PRODUCT SUBSTITUTION ISSUE [None]
